FAERS Safety Report 22531893 (Version 1)
Quarter: 2023Q2

REPORT INFORMATION
  Report Type: Spontaneous
  Country: US (occurrence: US)
  Receive Date: 20230607
  Receipt Date: 20230607
  Transmission Date: 20230722
  Serious: Yes (Hospitalization, Other)
  Sender: FDA-Public Use
  Company Number: US-INCYTE CORPORATION-2023IN002601

PATIENT

DRUGS (2)
  1. JAKAFI [Suspect]
     Active Substance: RUXOLITINIB
     Indication: Chronic graft versus host disease
     Dosage: 10 MILLIGRAM, BID
     Route: 048
     Dates: start: 20230110
  2. JAKAFI [Suspect]
     Active Substance: RUXOLITINIB
     Dosage: 10 MILLIGRAM, BID
     Route: 048
     Dates: start: 202302

REACTIONS (6)
  - Central nervous system fungal infection [Unknown]
  - Pyrexia [Unknown]
  - Sepsis [Unknown]
  - Neutropenia [Unknown]
  - Diabetes mellitus [Unknown]
  - Cytopenia [Unknown]

NARRATIVE: CASE EVENT DATE: 20230123
